FAERS Safety Report 6394914-3 (Version None)
Quarter: 2009Q4

REPORT INFORMATION
  Report Type: 
  Country: None (occurrence: None)
  Receive Date: 20091009
  Receipt Date: 20090928
  Transmission Date: 20100525
  Serious: Yes (Hospitalization)
  Sender: FDA-Public Use
  Company Number: US-BRISTOL-MYERS SQUIBB COMPANY-14796171

PATIENT
  Age: 70 Year
  Sex: Male

DRUGS (12)
  1. CEFEPIME [Suspect]
     Route: 042
  2. ACETAMINOPHEN [Suspect]
  3. MORPHINE SULFATE [Suspect]
  4. HEPARIN SODIUM [Suspect]
  5. ENOXAPARIN SODIUM [Suspect]
  6. FLUCONAZOLE [Suspect]
     Route: 048
  7. DEXAMETHASONE 0.5MG TAB [Suspect]
  8. MELOXICAM [Suspect]
  9. PAMIDRONIC ACID [Suspect]
  10. THALIDOMIDE [Suspect]
  11. VANCOMYCIN [Suspect]
     Route: 042
  12. FILGRASTIM [Suspect]

REACTIONS (1)
  - ACUTE GENERALISED EXANTHEMATOUS PUSTULOSIS [None]
